FAERS Safety Report 5278166-3 (Version None)
Quarter: 2007Q1

REPORT INFORMATION
  Report Type: 
  Country: None (occurrence: None)
  Receive Date: 20061213
  Receipt Date: 20060410
  Transmission Date: 20070707
  Serious: No
  Sender: FDA-Public Use
  Company Number: 2006UW03890

PATIENT
  Age: 58 Year
  Sex: Female

DRUGS (7)
  1. SEROQUEL [Suspect]
     Indication: DEPRESSION
     Dosage: 400 MG DAILY PO  (DURATION: A FEW MONTHS)
     Route: 048
  2. CYMBALTA [Concomitant]
  3. LITHIUM CARBONATE [Concomitant]
  4. LAMICTEL [Concomitant]
  5. GEODON [Concomitant]
  6. ZYPREXA [Concomitant]
  7. RISPERDAL [Concomitant]

REACTIONS (1)
  - TARDIVE DYSKINESIA [None]
